FAERS Safety Report 9356947 (Version 2)
Quarter: 2013Q3

REPORT INFORMATION
  Report Type: Spontaneous
  Country: JP (occurrence: JP)
  Receive Date: 20130620
  Receipt Date: 20130701
  Transmission Date: 20140515
  Serious: Yes (Other)
  Sender: FDA-Public Use
  Company Number: JP-ROCHE-1235404

PATIENT
  Age: 80 Year
  Sex: Female

DRUGS (4)
  1. LUCENTIS [Suspect]
     Indication: AGE-RELATED MACULAR DEGENERATION
     Route: 050
     Dates: start: 20130530
  2. THYRADIN [Concomitant]
  3. PREDNISOLONE [Concomitant]
  4. PARIET [Concomitant]

REACTIONS (3)
  - Hypertension [Recovered/Resolved]
  - Blood pressure increased [Recovering/Resolving]
  - Dizziness [Recovering/Resolving]
